FAERS Safety Report 17968947 (Version 2)
Quarter: 2022Q2

REPORT INFORMATION
  Report Type: Spontaneous
  Country: US (occurrence: US)
  Receive Date: 20200701
  Receipt Date: 20220614
  Transmission Date: 20220721
  Serious: No
  Sender: FDA-Public Use
  Company Number: US-PFM-2019-07687

PATIENT
  Sex: Male
  Weight: 6.349 kg

DRUGS (1)
  1. HEMANGEOL [Suspect]
     Active Substance: PROPRANOLOL HYDROCHLORIDE
     Indication: Infantile haemangioma
     Dosage: 2.4 ML, BID (2/DAY)
     Route: 048

REACTIONS (2)
  - Infantile spitting up [Unknown]
  - Sleep terror [Unknown]
